FAERS Safety Report 5828627-0 (Version None)
Quarter: 2008Q3

REPORT INFORMATION
  Report Type: 
  Country: None (occurrence: None)
  Receive Date: 20080731
  Receipt Date: 20080723
  Transmission Date: 20090109
  Serious: Yes (Other)
  Sender: FDA-Public Use
  Company Number: B0360998A

PATIENT
  Sex: Female

DRUGS (2)
  1. SEROXAT [Suspect]
     Indication: DEPRESSION
     Route: 065
     Dates: start: 20010522
  2. AMITRIPTYLINE HCL [Concomitant]
     Dates: start: 20010725

REACTIONS (19)
  - ABDOMINAL PAIN [None]
  - CHANGE OF BOWEL HABIT [None]
  - CRYING [None]
  - DEPRESSED MOOD [None]
  - DIARRHOEA [None]
  - DIZZINESS [None]
  - DRUG WITHDRAWAL SYNDROME [None]
  - ELECTRIC SHOCK [None]
  - FATIGUE [None]
  - FEELING OF DESPAIR [None]
  - HEADACHE [None]
  - INFLUENZA LIKE ILLNESS [None]
  - IRRITABLE BOWEL SYNDROME [None]
  - MUSCLE TIGHTNESS [None]
  - PANIC ATTACK [None]
  - SUICIDAL IDEATION [None]
  - TEARFULNESS [None]
  - TREMOR [None]
  - VOMITING [None]
